FAERS Safety Report 9701204 (Version 1)
Quarter: 2013Q4

REPORT INFORMATION
  Report Type: Spontaneous
  Country: US (occurrence: US)
  Receive Date: 20131121
  Receipt Date: 20131121
  Transmission Date: 20140711
  Serious: No
  Sender: FDA-Public Use
  Company Number: US-GILEAD-2008-0016052

PATIENT
  Sex: Female
  Weight: 79.38 kg

DRUGS (8)
  1. LETAIRIS [Suspect]
     Indication: PULMONARY ARTERIAL HYPERTENSION
     Route: 048
     Dates: start: 20080304
  2. REVATIO [Concomitant]
     Route: 048
  3. LASIX [Concomitant]
     Route: 048
  4. SULFAMETHOXAZOLE [Concomitant]
     Route: 048
  5. BACLOFEN [Concomitant]
     Route: 048
  6. PROMETHAZINE [Concomitant]
     Route: 048
  7. AMBIEN [Concomitant]
     Route: 048
  8. COENZYME [Concomitant]
     Route: 048

REACTIONS (2)
  - Local swelling [Unknown]
  - Swelling face [Unknown]
